FAERS Safety Report 6058019-3 (Version None)
Quarter: 2009Q1

REPORT INFORMATION
  Report Type: 
  Country: None (occurrence: None)
  Receive Date: 20090127
  Receipt Date: 20090114
  Transmission Date: 20090719
  Serious: Yes (Hospitalization)
  Sender: FDA-Public Use
  Company Number: 230505K09USA

PATIENT
  Age: 60 Year
  Sex: Female

DRUGS (1)
  1. REBIF [Suspect]
     Indication: MULTIPLE SCLEROSIS
     Dosage: 44 MCG, 3 IN 1 WEEKS, SUBCUTANEOUS
     Route: 058
     Dates: start: 20050309

REACTIONS (5)
  - ABDOMINAL PAIN UPPER [None]
  - MEDICAL DEVICE SITE REACTION [None]
  - MUSCULOSKELETAL STIFFNESS [None]
  - THROMBOSIS [None]
  - URINARY TRACT INFECTION [None]
